FAERS Safety Report 9127267 (Version 1)
Quarter: 2013Q1

REPORT INFORMATION
  Report Type: Spontaneous
  Country: US (occurrence: US)
  Receive Date: 20130228
  Receipt Date: 20130228
  Transmission Date: 20140127
  Serious: No
  Sender: FDA-Public Use
  Company Number: US-GLAXOSMITHKLINE-A0965007A

PATIENT
  Age: 18 Year
  Sex: Female

DRUGS (2)
  1. LAMICTAL [Suspect]
     Indication: BIPOLAR DISORDER
     Dosage: 100MG PER DAY
     Route: 048
     Dates: start: 201109
  2. NO CONCURRENT MEDICATION [Concomitant]

REACTIONS (12)
  - Headache [Not Recovered/Not Resolved]
  - Dizziness [Unknown]
  - Dry mouth [Unknown]
  - Insomnia [Unknown]
  - Fatigue [Unknown]
  - Depression [Unknown]
  - Disturbance in attention [Unknown]
  - Psychomotor hyperactivity [Unknown]
  - Mood altered [Unknown]
  - Dizziness [Unknown]
  - Anger [Unknown]
  - Crying [Unknown]
